FAERS Safety Report 8422590 (Version 3)
Quarter: 2018Q1

REPORT INFORMATION
  Report Type: Report from Study
  Country: AT (occurrence: AT)
  Receive Date: 20120223
  Receipt Date: 20180209
  Transmission Date: 20180509
  Serious: Yes (Hospitalization)
  Sender: FDA-Public Use
  Company Number: AT-TEVA-323689USA

PATIENT
  Age: 58 Year
  Sex: Male
  Weight: 83 kg

DRUGS (8)
  1. HYDROXYZINE [Concomitant]
     Active Substance: HYDROXYZINE HYDROCHLORIDE
     Dates: start: 20120217, end: 20120219
  2. DIFLUCORTOLONE VALERATE [Concomitant]
     Active Substance: DIFLUCORTOLONE VALERATE
     Dates: start: 20120217, end: 20120229
  3. MIRTABENE [Concomitant]
     Active Substance: MIRTAZAPINE
     Dates: start: 20120214, end: 20120218
  4. LISINOPRIL. [Concomitant]
     Active Substance: LISINOPRIL
     Dates: start: 201112
  5. TREANDA [Suspect]
     Active Substance: BENDAMUSTINE HYDROCHLORIDE
     Indication: NON-HODGKIN^S LYMPHOMA
     Dosage: 170 MILLIGRAM DAILY;
     Route: 042
     Dates: start: 20111221, end: 20120214
  6. LACTULOSE. [Concomitant]
     Active Substance: LACTULOSE
     Dates: start: 20120214, end: 20120217
  7. RITUXIMAB. [Suspect]
     Active Substance: RITUXIMAB
     Indication: NON-HODGKIN^S LYMPHOMA
     Dosage: 730 MILLIGRAM DAILY;
     Route: 042
     Dates: start: 20111220, end: 20120214
  8. PANTOPRAZOLE [Concomitant]
     Active Substance: PANTOPRAZOLE
     Dates: start: 201112

REACTIONS (1)
  - Rectal abscess [Recovered/Resolved]

NARRATIVE: CASE EVENT DATE: 20120214
